FAERS Safety Report 4756819-0 (Version None)
Quarter: 2005Q3

REPORT INFORMATION
  Report Type: 
  Country: None (occurrence: None)
  Receive Date: 20050826
  Receipt Date: 20050210
  Transmission Date: 20060218
  Serious: Yes (Other)
  Sender: FDA-Public Use
  Company Number: USA-2005-0018825

PATIENT
  Age: 28 Year
  Sex: Female
  Weight: 45.4 kg

DRUGS (1)
  1. OXYCONTIN [Suspect]
     Indication: PAIN
     Dosage: 60 MG, BID, ORAL
     Route: 048
     Dates: start: 20011224

REACTIONS (3)
  - DRUG ABUSER [None]
  - OVERDOSE [None]
  - SKIN INFECTION [None]
